FAERS Safety Report 5638949-4 (Version None)
Quarter: 2008Q1

REPORT INFORMATION
  Report Type: 
  Country: None (occurrence: None)
  Receive Date: 20080225
  Receipt Date: 20080225
  Transmission Date: 20080703
  Serious: Yes (Death)
  Sender: FDA-Public Use
  Company Number: None

PATIENT
  Sex: Male
  Weight: 69 kg

DRUGS (4)
  1. REMICADE [Suspect]
     Indication: CROHN'S DISEASE
     Dosage: 350MG. 19 TIMES OVER 4 YR IV DRIP
     Route: 041
     Dates: start: 20020710, end: 20060307
  2. REMICADE [Suspect]
     Indication: INFLAMMATORY BOWEL DISEASE
     Dosage: 350MG. 19 TIMES OVER 4 YR IV DRIP
     Route: 041
     Dates: start: 20020710, end: 20060307
  3. PURINETHOL [Suspect]
     Indication: CROHN'S DISEASE
     Dosage: 75 MG DAILY PO
     Route: 048
     Dates: start: 19990602, end: 20070312
  4. PURINETHOL [Suspect]
     Indication: INFLAMMATORY BOWEL DISEASE
     Dosage: 75 MG DAILY PO
     Route: 048
     Dates: start: 19990602, end: 20070312

REACTIONS (1)
  - HEPATOSPLENIC T-CELL LYMPHOMA [None]
